FAERS Safety Report 5699968-5 (Version None)
Quarter: 2008Q2

REPORT INFORMATION
  Report Type: 
  Country: None (occurrence: None)
  Receive Date: 20080410
  Receipt Date: 20080403
  Transmission Date: 20081010
  Serious: Yes (Other)
  Sender: FDA-Public Use
  Company Number: AU-AVENTIS-200813001GDDC

PATIENT
  Age: 78 Year
  Sex: Male

DRUGS (6)
  1. LANTUS [Suspect]
     Dates: start: 20080303
  2. LASIX [Concomitant]
  3. SPIRACTIN                          /00536902/ [Concomitant]
  4. CARVEDILOL [Concomitant]
  5. SIMVAR [Concomitant]
  6. TRITACE [Concomitant]

REACTIONS (1)
  - LOSS OF CONSCIOUSNESS [None]
